FAERS Safety Report 7803139-3 (Version None)
Quarter: 2011Q4

REPORT INFORMATION
  Report Type: 
  Country: None (occurrence: None)
  Receive Date: 20111007
  Receipt Date: 20110928
  Transmission Date: 20120403
  Serious: Yes (Other)
  Sender: FDA-Public Use
  Company Number: US-CELGENEUS-163-22393-11093669

PATIENT
  Sex: Male

DRUGS (1)
  1. ISTODAX [Suspect]
     Dosage: 14 MILLIGRAM/SQ. METER
     Route: 065

REACTIONS (1)
  - ARRHYTHMIA [None]
